FAERS Safety Report 24829084 (Version 4)
Quarter: 2025Q1

REPORT INFORMATION
  Report Type: Spontaneous
  Country: JP (occurrence: JP)
  Receive Date: 20250110
  Receipt Date: 20250206
  Transmission Date: 20250409
  Serious: No
  Sender: MERCK
  Company Number: JP-MSD-M2025-00395

PATIENT
  Age: 87 Year
  Sex: Male

DRUGS (1)
  1. LAGEVRIO [Suspect]
     Active Substance: MOLNUPIRAVIR
     Indication: COVID-19 treatment
     Dosage: 800 MILLIGRAM, BID
     Route: 048

REACTIONS (2)
  - Sensation of foreign body [Unknown]
  - Product use complaint [Unknown]
